FAERS Safety Report 7519120-8 (Version None)
Quarter: 2011Q2

REPORT INFORMATION
  Report Type: 
  Country: None (occurrence: None)
  Receive Date: 20110602
  Receipt Date: 20110531
  Transmission Date: 20111010
  Serious: Yes (Death)
  Sender: FDA-Public Use
  Company Number: PHHY2011US44729

PATIENT
  Sex: Male

DRUGS (1)
  1. RECLAST [Suspect]
     Dosage: 5 MG
     Route: 042
     Dates: start: 20100604

REACTIONS (2)
  - CHRONIC OBSTRUCTIVE PULMONARY DISEASE [None]
  - EMPHYSEMA [None]
